FAERS Safety Report 14590186 (Version 2)
Quarter: 2018Q1

REPORT INFORMATION
  Report Type: Report from Study
  Country: IL (occurrence: IL)
  Receive Date: 20180302
  Receipt Date: 20180320
  Transmission Date: 20180509
  Serious: Yes (Hospitalization)
  Sender: FDA-Public Use
  Company Number: IL-ASTRAZENECA-2018SE16686

PATIENT
  Age: 57 Year
  Sex: Male
  Weight: 93 kg

DRUGS (2)
  1. DURVALUMAB. [Suspect]
     Active Substance: DURVALUMAB
     Indication: NON-SMALL CELL LUNG CANCER
     Dosage: 750 MG, CYCLICAL
     Route: 042
     Dates: start: 20180116, end: 20180116
  2. LY3022855 [Suspect]
     Active Substance: INVESTIGATIONAL PRODUCT
     Indication: NON-SMALL CELL LUNG CANCER
     Dosage: 100 MG, CYCLICAL
     Route: 042
     Dates: start: 20180116, end: 20180124

REACTIONS (1)
  - Superior vena cava syndrome [Recovered/Resolved]

NARRATIVE: CASE EVENT DATE: 20180203
